FAERS Safety Report 16599430 (Version 2)
Quarter: 2020Q1

REPORT INFORMATION
  Report Type: Report from Study
  Country: US (occurrence: US)
  Receive Date: 20190719
  Receipt Date: 20200102
  Transmission Date: 20200409
  Serious: Yes (Death, Hospitalization)
  Sender: FDA-Public Use
  Company Number: US-ACTELION-A-US2019-193006

PATIENT
  Age: 55 Year
  Sex: Female

DRUGS (2)
  1. SILDENAFIL. [Concomitant]
     Active Substance: SILDENAFIL
     Dosage: 40 MG, TID
     Route: 048
  2. UPTRAVI [Suspect]
     Active Substance: SELEXIPAG
     Indication: PULMONARY ARTERIAL HYPERTENSION
     Dosage: 800 MCG, BID
     Route: 048
     Dates: start: 20170926, end: 20191204

REACTIONS (4)
  - Ammonia increased [Unknown]
  - Confusional state [Unknown]
  - Unresponsive to stimuli [Unknown]
  - Death [Fatal]

NARRATIVE: CASE EVENT DATE: 20190703
